FAERS Safety Report 7756710-1 (Version None)
Quarter: 2011Q3

REPORT INFORMATION
  Report Type: 
  Country: None (occurrence: None)
  Receive Date: 20110916
  Receipt Date: 20110913
  Transmission Date: 20111222
  Serious: Yes (Other)
  Sender: FDA-Public Use
  Company Number: DE-ROXANE LABORATORIES, INC.-2011-RO-01263RO

PATIENT
  Age: 41 Year
  Sex: Female

DRUGS (6)
  1. AZATHIOPRINE [Suspect]
     Indication: TAKAYASU'S ARTERITIS
  2. CYCLOPHOSPHAMIDE [Suspect]
  3. 2-MERCAPTOETHANESULFONIC ACID [Suspect]
  4. GLUCOCORTICOIDS [Concomitant]
     Indication: TEMPORAL ARTERITIS
  5. CYCLOPHOSPHAMIDE [Suspect]
     Indication: TAKAYASU'S ARTERITIS
  6. TRIMETHOPRIM + SULFAMETHOXAZOLE [Suspect]
     Indication: ANTIFUNGAL PROPHYLAXIS

REACTIONS (1)
  - TREATMENT FAILURE [None]
